FAERS Safety Report 7232841-X (Version None)
Quarter: 2011Q1

REPORT INFORMATION
  Report Type: 
  Country: None (occurrence: None)
  Receive Date: 20110110
  Receipt Date: 20101229
  Transmission Date: 20110831
  Serious: Yes (Hospitalization)
  Sender: FDA-Public Use
  Company Number: 1000018041

PATIENT
  Age: 73 Year
  Sex: Female
  Weight: 70 kg

DRUGS (3)
  1. RELANIUM (DIAZEPAM) [Suspect]
     Dosage: (5 MG)
     Dates: start: 20101210
  2. XANAX [Suspect]
     Dates: start: 20101210
  3. ESCITALOPRAM [Suspect]
     Dates: start: 20101210

REACTIONS (3)
  - SOMNOLENCE [None]
  - DEPRESSED LEVEL OF CONSCIOUSNESS [None]
  - SUICIDE ATTEMPT [None]
